FAERS Safety Report 9205473 (Version 2)
Quarter: 2013Q2

REPORT INFORMATION
  Report Type: Spontaneous
  Country: US (occurrence: US)
  Receive Date: 20130403
  Receipt Date: 20130516
  Transmission Date: 20140414
  Serious: Yes (Hospitalization)
  Sender: FDA-Public Use
  Company Number: US-BIOGENIDEC-2013BI029149

PATIENT
  Age: 58 Year
  Sex: Female

DRUGS (11)
  1. TYSABRI [Suspect]
     Indication: MULTIPLE SCLEROSIS
     Route: 042
     Dates: start: 20090928
  2. ADVAIR [Concomitant]
  3. ALBUTEROL [Concomitant]
  4. BACLOFEN [Concomitant]
  5. DEPAKOTE [Concomitant]
  6. LASIX [Concomitant]
  7. LABETALOL [Concomitant]
  8. HYOSCYAMINE [Concomitant]
  9. CHLORDIAZEPOXIDE [Concomitant]
  10. CLIDINIUM [Concomitant]
  11. CHLOR-TRIMETON [Concomitant]

REACTIONS (3)
  - Osteoarthritis [Unknown]
  - Adverse drug reaction [Unknown]
  - Drug specific antibody present [Unknown]
